FAERS Safety Report 9288943 (Version 1)
Quarter: 2013Q2

REPORT INFORMATION
  Report Type: Spontaneous
  Country: US (occurrence: US)
  Receive Date: 20130514
  Receipt Date: 20130514
  Transmission Date: 20140414
  Serious: No
  Sender: FDA-Public Use
  Company Number: US-009507513-1304USA013491

PATIENT
  Age: 54 Year
  Sex: Female

DRUGS (3)
  1. REBETOL [Suspect]
     Indication: HEPATITIS C
     Dosage: THREE 200 MG CAPSULES, TWICE A DAY
     Route: 048
     Dates: start: 20130318
  2. PEGINTRON [Suspect]
     Indication: HEPATITIS C
     Dosage: UNK
     Dates: start: 20130318
  3. VICTRELIS [Suspect]
     Dosage: UNK
     Route: 048
     Dates: start: 20130425

REACTIONS (9)
  - Tearfulness [Recovered/Resolved]
  - Poor quality sleep [Unknown]
  - Fatigue [Unknown]
  - Thirst [Unknown]
  - Dysgeusia [Unknown]
  - Insomnia [Unknown]
  - Decreased appetite [Unknown]
  - Headache [Unknown]
  - Blood disorder [Unknown]
